FAERS Safety Report 6227484-0 (Version None)
Quarter: 2009Q2

REPORT INFORMATION
  Report Type: 
  Country: None (occurrence: None)
  Receive Date: 20090610
  Receipt Date: 20090610
  Transmission Date: 20091009
  Serious: Yes (Hospitalization)
  Sender: FDA-Public Use
  Company Number: None

PATIENT
  Age: 60 Year
  Sex: Female
  Weight: 67 kg

DRUGS (1)
  1. VELCADE [Suspect]
     Indication: MULTIPLE MYELOMA
     Dates: start: 20090101, end: 20090301

REACTIONS (4)
  - DIALYSIS [None]
  - PLASMACYTOMA [None]
  - PLEURAL DISORDER [None]
  - RENAL FAILURE ACUTE [None]
